FAERS Safety Report 8093803-6 (Version None)
Quarter: 2012Q1

REPORT INFORMATION
  Report Type: 
  Country: None (occurrence: None)
  Receive Date: 20120129
  Receipt Date: 20110909
  Transmission Date: 20120608
  Serious: No
  Sender: FDA-Public Use
  Company Number: US-ABBOTT-11P-163-0854017-00

PATIENT
  Sex: Female
  Weight: 83.99 kg

DRUGS (2)
  1. PREDNISONE TAB [Concomitant]
     Indication: RHEUMATOID ARTHRITIS
  2. HUMIRA [Suspect]
     Indication: RHEUMATOID ARTHRITIS
     Dosage: ON HOLD
     Dates: start: 19990101, end: 20110801

REACTIONS (5)
  - RASH PAPULAR [None]
  - ILL-DEFINED DISORDER [None]
  - STAPHYLOCOCCAL INFECTION [None]
  - PAIN [None]
  - PRURITUS [None]
